FAERS Safety Report 7756629-6 (Version None)
Quarter: 2011Q3

REPORT INFORMATION
  Report Type: 
  Country: None (occurrence: None)
  Receive Date: 20110916
  Receipt Date: 20110913
  Transmission Date: 20111222
  Serious: Yes (Disabling)
  Sender: FDA-Public Use
  Company Number: PHHY2011TH82039

PATIENT
  Age: 71 Year
  Sex: Female

DRUGS (1)
  1. ZOLEDRONOC ACID [Suspect]
     Indication: OSTEOPOROSIS
     Dosage: 5 MG, ONCE YEARLY
     Route: 042

REACTIONS (9)
  - TONGUE DISCOLOURATION [None]
  - HYPOKINESIA [None]
  - ERYTHEMA [None]
  - MUSCULOSKELETAL STIFFNESS [None]
  - HYPOTONIA [None]
  - CONDITION AGGRAVATED [None]
  - PARALYSIS [None]
  - SPEECH DISORDER [None]
  - PRURITUS [None]
